FAERS Safety Report 9871569 (Version 2)
Quarter: 2014Q4

REPORT INFORMATION
  Report Type: Spontaneous
  Country: US (occurrence: US)
  Receive Date: 20140205
  Receipt Date: 20141015
  Transmission Date: 20150529
  Serious: Yes (Hospitalization, Other)
  Sender: FDA-Public Use
  Company Number: US-009507513-1402USA002028

PATIENT
  Sex: Female

DRUGS (1)
  1. NUVARING [Suspect]
     Active Substance: ETHINYL ESTRADIOL\ETONOGESTREL
     Route: 067

REACTIONS (11)
  - Pulmonary embolism [Unknown]
  - Polycystic ovaries [Unknown]
  - Amenorrhoea [Unknown]
  - Mood altered [Unknown]
  - Mood altered [Unknown]
  - Menstruation irregular [Unknown]
  - Weight increased [Unknown]
  - Deep vein thrombosis [Unknown]
  - Dyspareunia [Unknown]
  - Vaginal infection [Unknown]
  - Lung disorder [Unknown]

NARRATIVE: CASE EVENT DATE: 2005
